FAERS Safety Report 6506894-8 (Version None)
Quarter: 2009Q4

REPORT INFORMATION
  Report Type: 
  Country: None (occurrence: None)
  Receive Date: 20091221
  Receipt Date: 20091211
  Transmission Date: 20100525
  Serious: Yes (Other)
  Sender: FDA-Public Use
  Company Number: US-WYE-H12604109

PATIENT

DRUGS (2)
  1. PRISTIQ [Suspect]
     Dosage: UNKNOWN
  2. WARFARIN SODIUM [Interacting]
     Dosage: UNKNOWN

REACTIONS (2)
  - DRUG INTERACTION [None]
  - INTERNATIONAL NORMALISED RATIO INCREASED [None]
